FAERS Safety Report 4634074-X (Version None)
Quarter: 2005Q2

REPORT INFORMATION
  Report Type: 
  Country: None (occurrence: None)
  Receive Date: 20050413
  Receipt Date: 20050401
  Transmission Date: 20051028
  Serious: Yes (Other)
  Sender: FDA-Public Use
  Company Number: US-GLAXOSMITHKLINE-A0552231A

PATIENT
  Age: 83 Year
  Sex: Male
  Weight: 90 kg

DRUGS (1)
  1. TUMS [Suspect]
     Indication: DYSPEPSIA
     Route: 048

REACTIONS (4)
  - DYSPEPSIA [None]
  - LUNG NEOPLASM MALIGNANT [None]
  - NAUSEA [None]
  - WEIGHT DECREASED [None]
